FAERS Safety Report 6179284-8 (Version None)
Quarter: 2009Q2

REPORT INFORMATION
  Report Type: 
  Country: None (occurrence: None)
  Receive Date: 20090505
  Receipt Date: 20090424
  Transmission Date: 20091009
  Serious: Yes (Hospitalization, Other)
  Sender: FDA-Public Use
  Company Number: US-BAYER-200913280NA

PATIENT
  Age: 56 Year
  Sex: Male

DRUGS (9)
  1. NEXAVAR [Suspect]
     Indication: HEPATIC NEOPLASM MALIGNANT
     Dosage: TOTAL DAILY DOSE: 800 MG  UNIT DOSE: 200 MG
     Route: 048
     Dates: start: 20090202, end: 20090209
  2. LASIX [Concomitant]
  3. ALDACTONE [Concomitant]
  4. LACTULOSE [Concomitant]
  5. NEOMYCIN [Concomitant]
  6. PRILOSEC [Concomitant]
  7. PROPRANOLOL [Concomitant]
  8. ZINC [Concomitant]
  9. URSODIOL [Concomitant]

REACTIONS (8)
  - ACUTE PRERENAL FAILURE [None]
  - ALOPECIA [None]
  - AMMONIA INCREASED [None]
  - BLOOD AMYLASE INCREASED [None]
  - BLOOD CREATININE INCREASED [None]
  - BLOOD UREA INCREASED [None]
  - LIPASE INCREASED [None]
  - SKIN EXFOLIATION [None]
